FAERS Safety Report 23067995 (Version 1)
Quarter: 2023Q4

REPORT INFORMATION
  Report Type: Spontaneous
  Country: FR (occurrence: FR)
  Receive Date: 20231016
  Receipt Date: 20231016
  Transmission Date: 20240110
  Serious: Yes (Life-Threatening, Hospitalization, Other)
  Sender: FDA-Public Use
  Company Number: FR-ALKEM LABORATORIES LIMITED-FR-ALKEM-2023-12165

PATIENT
  Age: 40 Year
  Sex: Male

DRUGS (3)
  1. METHADONE HYDROCHLORIDE [Suspect]
     Active Substance: METHADONE HYDROCHLORIDE
     Indication: Product used for unknown indication
     Dosage: UNK
     Route: 048
  2. DIAZEPAM [Suspect]
     Active Substance: DIAZEPAM
     Indication: Product used for unknown indication
     Dosage: UNK
     Route: 048
  3. NORDAZEPAM [Concomitant]
     Active Substance: NORDAZEPAM
     Indication: Product used for unknown indication
     Dosage: UNK
     Route: 065

REACTIONS (19)
  - Coma [Unknown]
  - Cardiac failure [Unknown]
  - Hypoxia [Unknown]
  - Overdose [Unknown]
  - Toxicity to various agents [Unknown]
  - Cerebral microhaemorrhage [Unknown]
  - Acute hepatic failure [Unknown]
  - Acute kidney injury [Unknown]
  - Monoplegia [Unknown]
  - Pneumonia aspiration [Unknown]
  - Anterograde amnesia [Unknown]
  - Pyramidal tract syndrome [Unknown]
  - Leukoencephalopathy [Unknown]
  - Executive dysfunction [Unknown]
  - Coagulopathy [Unknown]
  - Aphasia [Unknown]
  - Motor dysfunction [Unknown]
  - Sensory loss [Unknown]
  - Confusional state [Unknown]
